FAERS Safety Report 16128518 (Version 1)
Quarter: 2019Q1

REPORT INFORMATION
  Report Type: Report from Study
  Country: FR (occurrence: FR)
  Receive Date: 20190328
  Receipt Date: 20190328
  Transmission Date: 20190418
  Serious: Yes (Hospitalization)
  Sender: FDA-Public Use
  Company Number: FR-PFIZER INC-2019127482

PATIENT
  Age: 48 Year
  Sex: Male

DRUGS (4)
  1. DEGARELIX ACETATE [Suspect]
     Active Substance: DEGARELIX ACETATE
     Indication: PROSTATE CANCER METASTATIC
     Dosage: 80 MG, CYCLIC
     Route: 042
     Dates: start: 20171125, end: 20171125
  2. DOCETAXEL. [Suspect]
     Active Substance: DOCETAXEL
     Indication: PROSTATE CANCER METASTATIC
     Dosage: 140 MG, CYCLIC
     Route: 042
     Dates: start: 20171222, end: 20171222
  3. DOCETAXEL. [Suspect]
     Active Substance: DOCETAXEL
     Dosage: 140 MG, CYCLIC
     Route: 042
     Dates: start: 20180111, end: 20180111
  4. DEGARELIX ACETATE [Suspect]
     Active Substance: DEGARELIX ACETATE
     Dosage: 80 MG, CYCLIC
     Route: 042
     Dates: start: 201712, end: 201712

REACTIONS (1)
  - Lung disorder [Recovered/Resolved]

NARRATIVE: CASE EVENT DATE: 20180114
